FAERS Safety Report 4332004-1 (Version None)
Quarter: 2004Q2

REPORT INFORMATION
  Report Type: 
  Country: None (occurrence: None)
  Receive Date: 20040405
  Receipt Date: 20031202
  Transmission Date: 20050107
  Serious: No
  Sender: FDA-Public Use
  Company Number: US-GLAXOSMITHKLINE-A0441913A

PATIENT
  Age: 5 Year
  Sex: Male

DRUGS (1)
  1. SEREVENT [Suspect]
     Indication: ILL-DEFINED DISORDER
     Route: 055

REACTIONS (2)
  - LACTOSE INTOLERANCE [None]
  - SINUSITIS [None]
